FAERS Safety Report 8183360-8 (Version None)
Quarter: 2012Q1

REPORT INFORMATION
  Report Type: 
  Country: None (occurrence: None)
  Receive Date: 20120130
  Receipt Date: 20110919
  Transmission Date: 20120608
  Serious: Yes (Other)
  Sender: FDA-Public Use
  Company Number: 040838

PATIENT
  Sex: Female
  Weight: 84.4 kg

DRUGS (6)
  1. DILANTIN [Concomitant]
  2. LISINOPRIL ( TO CONTINUING) [Concomitant]
  3. TRAMADOL HCL [Concomitant]
  4. MELOXICAM [Concomitant]
  5. NORVASC [Concomitant]
  6. KEPPRA [Suspect]
     Indication: CONVULSION
     Dosage: (500 MG BID ORAL)
     Route: 048
     Dates: start: 20040101

REACTIONS (3)
  - CONVULSION [None]
  - TONGUE INJURY [None]
  - MOUTH INJURY [None]
